FAERS Safety Report 10161709 (Version 1)
Quarter: 2014Q2

REPORT INFORMATION
  Report Type: Spontaneous
  Country: US (occurrence: None)
  Receive Date: 20140507
  Receipt Date: 20140507
  Transmission Date: 20141212
  Serious: Yes (Death)
  Sender: FDA-Public Use
  Company Number: 2317105

PATIENT
  Age: 20 Month
  Sex: Male

DRUGS (3)
  1. PIPERACILLIN AND TAZOBACTAM [Suspect]
     Indication: ANTIBIOTIC THERAPY
     Dosage: NOT REPORTED, UNKNOWN, UNKNOWN, UNKNOWN
  2. VANCOMYCIN HYDROCLORIDE [Suspect]
     Indication: ANTIBIOTIC THERAPY
     Dosage: NOT REPORTED, UNKNOWN, UNKNOWN, UNKNOWN
  3. VORICONAZOLE [Concomitant]

REACTIONS (4)
  - Skin necrosis [None]
  - Heart transplant rejection [None]
  - Systemic mycosis [None]
  - Cardiopulmonary failure [None]
